FAERS Safety Report 7779526-9 (Version None)
Quarter: 2011Q3

REPORT INFORMATION
  Report Type: 
  Country: None (occurrence: None)
  Receive Date: 20110927
  Receipt Date: 20110920
  Transmission Date: 20111222
  Serious: Yes (Other)
  Sender: FDA-Public Use
  Company Number: US-RB-028296-11

PATIENT
  Age: 17 Year
  Sex: Male

DRUGS (2)
  1. TRIPLE C-CORICIDEN [Suspect]
  2. DELSYM [Suspect]
     Route: 048

REACTIONS (7)
  - DECREASED APPETITE [None]
  - DEPENDENCE [None]
  - FEELING ABNORMAL [None]
  - MYDRIASIS [None]
  - DRUG ABUSE [None]
  - INSOMNIA [None]
  - PSYCHOTIC DISORDER [None]
